FAERS Safety Report 10884836 (Version 1)
Quarter: 2015Q1

REPORT INFORMATION
  Report Type: Report from Study
  Country: US (occurrence: US)
  Receive Date: 20150304
  Receipt Date: 20150304
  Transmission Date: 20150721
  Serious: Yes (Hospitalization)
  Sender: FDA-Public Use
  Company Number: US-SA-2015SA025437

PATIENT
  Age: 61 Year
  Sex: Female

DRUGS (2)
  1. LANTUS [Suspect]
     Active Substance: INSULIN GLARGINE
     Indication: TYPE 2 DIABETES MELLITUS
     Dosage: TREATMENT START DATE: 5-6 YEARS AGO DOSE:80 UNIT(S)
     Route: 065
  2. HUMULIN NOS [Concomitant]
     Active Substance: INSULIN HUMAN

REACTIONS (3)
  - Blood glucose increased [Unknown]
  - Chronic obstructive pulmonary disease [Unknown]
  - Drug administration error [Unknown]
